FAERS Safety Report 9022794 (Version 1)
Quarter: 2013Q1

REPORT INFORMATION
  Report Type: Spontaneous
  Country: US (occurrence: US)
  Receive Date: 20130120
  Receipt Date: 20130120
  Transmission Date: 20140127
  Serious: No
  Sender: FDA-Public Use
  Company Number: US-ALLERGAN-1217500US

PATIENT
  Age: 45 None
  Sex: Female

DRUGS (3)
  1. BOTOX? [Suspect]
     Indication: HYPERHIDROSIS
     Dosage: 22 UNITS, SINGLE
     Route: 030
  2. BOTOX? [Suspect]
     Indication: SKIN WRINKLING
     Dosage: 30 UNITS, SINGLE
     Route: 030
     Dates: start: 20120530, end: 20120530
  3. BOTOX? [Suspect]
     Dosage: 20 UNITS, SINGLE
     Dates: start: 20120615, end: 20120615

REACTIONS (1)
  - Dyspnoea [Unknown]
